FAERS Safety Report 9809686 (Version 3)
Quarter: 2014Q4

REPORT INFORMATION
  Report Type: Spontaneous
  Country: US (occurrence: US)
  Receive Date: 20140110
  Receipt Date: 20141229
  Transmission Date: 20150529
  Serious: Yes (Other)
  Sender: FDA-Public Use
  Company Number: US-SANOFI-AVENTIS-2012SA022227

PATIENT
  Age: 76 Year
  Sex: Female

DRUGS (6)
  1. ASPIRIN. [Suspect]
     Active Substance: ASPIRIN
     Route: 065
     Dates: start: 20070309
  2. PLAVIX [Suspect]
     Active Substance: CLOPIDOGREL BISULFATE
     Indication: ACUTE CORONARY SYNDROME
     Route: 065
     Dates: start: 20070315, end: 20100411
  3. COUMADIN [Concomitant]
     Active Substance: WARFARIN SODIUM
     Dates: start: 20070313, end: 20070501
  4. AGRYLIN [Concomitant]
     Active Substance: ANAGRELIDE HYDROCHLORIDE
     Dates: start: 200907
  5. PLAVIX [Suspect]
     Active Substance: CLOPIDOGREL BISULFATE
     Indication: CORONARY ARTERIAL STENT INSERTION
     Route: 065
     Dates: start: 20070315, end: 20100411
  6. HYDROXYUREA. [Concomitant]
     Active Substance: HYDROXYUREA
     Dates: start: 20070303, end: 20090630

REACTIONS (5)
  - Visual impairment [Unknown]
  - Temperature intolerance [Unknown]
  - Memory impairment [Unknown]
  - Headache [Unknown]
  - Cerebral haemorrhage [Unknown]

NARRATIVE: CASE EVENT DATE: 20100411
